FAERS Safety Report 19198733 (Version 1)
Quarter: 2021Q2

REPORT INFORMATION
  Report Type: Spontaneous
  Country: DE (occurrence: DE)
  Receive Date: 20210430
  Receipt Date: 20210430
  Transmission Date: 20210717
  Serious: Yes (Hospitalization)
  Sender: FDA-Public Use
  Company Number: DE-ASTRAZENECA-2021A357306

PATIENT
  Age: 71 Year
  Sex: Female

DRUGS (1)
  1. FORXIGA [Suspect]
     Active Substance: DAPAGLIFLOZIN
     Route: 048

REACTIONS (8)
  - Dizziness [Recovering/Resolving]
  - Thirst [Unknown]
  - Vulvovaginal pruritus [Unknown]
  - Back pain [Unknown]
  - Menstrual disorder [Unknown]
  - Pollakiuria [Unknown]
  - Pelvic prolapse [Unknown]
  - Insomnia [Unknown]
